FAERS Safety Report 7988233-9 (Version None)
Quarter: 2011Q4

REPORT INFORMATION
  Report Type: 
  Country: None (occurrence: None)
  Receive Date: 20111216
  Receipt Date: 20110609
  Transmission Date: 20120403
  Serious: No
  Sender: FDA-Public Use
  Company Number: US-BRISTOL-MYERS SQUIBB COMPANY-15818503

PATIENT
  Age: 8 Decade
  Sex: Female

DRUGS (2)
  1. ABILIFY [Suspect]
     Indication: DEPRESSION
     Dosage: DF: 2.5 MG TO 10MG, DEPENDING ON RESPONSE TO THERAPY
  2. WELLBUTRIN [Suspect]

REACTIONS (1)
  - DYSKINESIA [None]
